FAERS Safety Report 8826442 (Version 2)
Quarter: 2012Q4

REPORT INFORMATION
  Report Type: 
  Country: JP (occurrence: JP)
  Receive Date: 20121008
  Receipt Date: 20121126
  Transmission Date: 20130627
  Serious: Yes (Other)
  Sender: FDA-Public Use
  Company Number: PHHY2012JP087752

PATIENT
  Age: 68 Year
  Sex: Male

DRUGS (2)
  1. ZOMETA [Suspect]
     Indication: METASTASES TO BONE
     Route: 041
     Dates: start: 20120817
  2. LOXONIN [Concomitant]
     Dates: end: 20121110

REACTIONS (2)
  - Pathological fracture [Recovering/Resolving]
  - Malignant neoplasm progression [Unknown]
